FAERS Safety Report 18773857 (Version 1)
Quarter: 2021Q1

REPORT INFORMATION
  Report Type: Spontaneous
  Country: US (occurrence: US)
  Receive Date: 20210122
  Receipt Date: 20210122
  Transmission Date: 20210419
  Serious: Yes (Death)
  Sender: FDA-Public Use
  Company Number: None

PATIENT
  Age: 81 Year
  Sex: Male

DRUGS (10)
  1. TACROLIMUS. [Suspect]
     Active Substance: TACROLIMUS
     Indication: RENAL TRANSPLANT
     Route: 048
     Dates: start: 20190128, end: 20201209
  2. CEPHALEXIN 500MG [Concomitant]
     Active Substance: CEPHALEXIN
     Dates: start: 20201116, end: 20201123
  3. FAMOTIDINE 20 MG [Concomitant]
     Active Substance: FAMOTIDINE
     Dates: start: 20201123, end: 20201209
  4. GALANTAMINE HBR 8MG [Concomitant]
     Dates: start: 20201113, end: 20201209
  5. DIVALPROEX DR 250MG [Concomitant]
     Active Substance: DIVALPROEX SODIUM
     Dates: start: 20201112, end: 20201209
  6. LATANOPROST 0.005% [Concomitant]
     Active Substance: LATANOPROST
     Dates: start: 20201125, end: 20201209
  7. CARVEDILOL 3.125 MG [Concomitant]
     Active Substance: CARVEDILOL
     Dates: start: 20201123, end: 20201209
  8. QUETIAPINE 25MG [Concomitant]
     Active Substance: QUETIAPINE
     Dates: start: 20201201, end: 20201209
  9. CLINDAMYCIN 300 MG [Concomitant]
     Active Substance: CLINDAMYCIN PHOSPHATE
     Dates: start: 20201120, end: 20201127
  10. MEMANTINE. [Concomitant]
     Active Substance: MEMANTINE
     Dates: start: 20201112, end: 20201209

REACTIONS (1)
  - Cerebrovascular accident [None]

NARRATIVE: CASE EVENT DATE: 20201209
